FAERS Safety Report 10178101 (Version 1)
Quarter: 2014Q2

REPORT INFORMATION
  Report Type: Report from Study
  Country: DE (occurrence: DE)
  Receive Date: 20140519
  Receipt Date: 20140519
  Transmission Date: 20141212
  Serious: Yes (Hospitalization)
  Sender: FDA-Public Use
  Company Number: DE-ROCHE-599446

PATIENT
  Age: 74 Year
  Sex: Female

DRUGS (4)
  1. RANIBIZUMAB [Suspect]
     Indication: AGE-RELATED MACULAR DEGENERATION
     Dosage: BLINDED DRUG. FREQUENCY: DAILY. SINGLE INTRAVITERAL INJECTION.
     Route: 050
  2. RANIBIZUMAB [Suspect]
     Dosage: BLINDED DRUG. FREQUENCY: DAILY. SINGLE INTRAVITERAL INJECTION.
     Route: 050
  3. BLINDED BEVACIZUMAB [Suspect]
     Indication: AGE-RELATED MACULAR DEGENERATION
     Dosage: FREQUENCY: DAILY. SINGLE INTRAVITERAL INJECTION.
     Route: 050
  4. BLINDED BEVACIZUMAB [Suspect]
     Dosage: FREQUENCY: DAILY. SINGLE INTRAVITERAL INJECTION.
     Route: 050

REACTIONS (2)
  - Headache [Recovered/Resolved]
  - Paresis [Recovered/Resolved]
